FAERS Safety Report 19702897 (Version 4)
Quarter: 2024Q2

REPORT INFORMATION
  Report Type: Other
  Country: DE (occurrence: None)
  Receive Date: 20210816
  Receipt Date: 20240503
  Transmission Date: 20240716
  Serious: No
  Sender: FDA-Public Use
  Company Number: DE-ROCHE-2885268

PATIENT
  Age: 35 Year
  Sex: Female

DRUGS (7)
  1. OCRELIZUMAB [Suspect]
     Active Substance: OCRELIZUMAB
     Indication: Relapsing multiple sclerosis
     Route: 042
     Dates: start: 20190731, end: 20230809
  2. OCRELIZUMAB [Suspect]
     Active Substance: OCRELIZUMAB
     Indication: Multiple sclerosis
     Route: 042
     Dates: start: 20190130, end: 20190213
  3. CALCIUM\CHOLECALCIFEROL [Concomitant]
     Active Substance: CALCIUM\CHOLECALCIFEROL
     Indication: Prophylaxis
     Dosage: AS REQUIRED
     Route: 048
  4. MENAQUINONE 6 [Concomitant]
     Active Substance: MENAQUINONE 6
     Indication: Prophylaxis
     Route: 048
  5. CHOLECALCIFEROL [Concomitant]
     Active Substance: CHOLECALCIFEROL
     Route: 048
  6. PFIZER-BIONTECH COVID-19 VACCINE [Concomitant]
     Active Substance: TOZINAMERAN
     Indication: COVID-19 immunisation
     Dates: start: 20210601, end: 20210601
  7. PFIZER-BIONTECH COVID-19 VACCINE [Concomitant]
     Active Substance: TOZINAMERAN
     Dates: start: 20210629, end: 20210629

REACTIONS (4)
  - SARS-CoV-2 test positive [Recovered/Resolved]
  - Sinusitis [Recovered/Resolved]
  - Rubella [Recovered/Resolved]
  - Erythema infectiosum [Recovered/Resolved]

NARRATIVE: CASE EVENT DATE: 20210412
